FAERS Safety Report 12410514 (Version 1)
Quarter: 2016Q2

REPORT INFORMATION
  Report Type: Spontaneous
  Country: US (occurrence: None)
  Receive Date: 20160526
  Receipt Date: 20160526
  Transmission Date: 20160815
  Serious: Yes (Disabling)
  Sender: FDA-Public Use
  Company Number: None

PATIENT
  Age: 61 Year
  Sex: Female
  Weight: 90.72 kg

DRUGS (1)
  1. XIFAXAN [Suspect]
     Active Substance: RIFAXIMIN
     Indication: SMALL INTESTINAL BACTERIAL OVERGROWTH
     Route: 048

REACTIONS (8)
  - Nasal disorder [None]
  - Oropharyngeal pain [None]
  - Mastitis [None]
  - Contusion [None]
  - Eye irritation [None]
  - Infection [None]
  - Pharyngeal oedema [None]
  - Eye disorder [None]

NARRATIVE: CASE EVENT DATE: 20150701
